FAERS Safety Report 19840440 (Version 17)
Quarter: 2022Q3

REPORT INFORMATION
  Report Type: Report from Study
  Country: CA (occurrence: CA)
  Receive Date: 20210915
  Receipt Date: 20220822
  Transmission Date: 20221027
  Serious: Yes (Hospitalization, Other)
  Sender: FDA-Public Use
  Company Number: CA-TAKEDA-CA202031278

PATIENT
  Age: 64 Year
  Sex: Female
  Weight: 59 kg

DRUGS (13)
  1. VELAGLUCERASE ALFA [Suspect]
     Active Substance: VELAGLUCERASE ALFA
     Indication: Gaucher^s disease
     Dosage: 8 DOSAGE FORM, 2/WEEK
     Route: 042
     Dates: start: 20101029
  2. VELAGLUCERASE ALFA [Suspect]
     Active Substance: VELAGLUCERASE ALFA
     Dosage: 8 DOSAGE FORM, Q2WEEKS
     Route: 042
     Dates: start: 20101029
  3. VELAGLUCERASE ALFA [Suspect]
     Active Substance: VELAGLUCERASE ALFA
     Dosage: 8 DOSAGE FORM, Q2WEEKS
     Route: 042
     Dates: start: 20101029
  4. VELAGLUCERASE ALFA [Suspect]
     Active Substance: VELAGLUCERASE ALFA
     Dosage: 8 DOSAGE FORM, Q2WEEKS
     Route: 042
     Dates: start: 20101029
  5. VELAGLUCERASE ALFA [Suspect]
     Active Substance: VELAGLUCERASE ALFA
     Dosage: 8 DOSAGE FORM, Q2WEEKS
     Route: 042
     Dates: start: 20101029
  6. VELAGLUCERASE ALFA [Suspect]
     Active Substance: VELAGLUCERASE ALFA
     Dosage: 8 INTERNATIONAL UNIT, Q2WEEKS
     Route: 042
     Dates: start: 20101029
  7. VELAGLUCERASE ALFA [Suspect]
     Active Substance: VELAGLUCERASE ALFA
     Dosage: 8 DOSAGE FORM, Q2WEEKS
     Route: 042
     Dates: start: 20101029
  8. VELAGLUCERASE ALFA [Suspect]
     Active Substance: VELAGLUCERASE ALFA
     Dosage: 8 INTERNATIONAL UNIT, Q2WEEKS
     Route: 050
     Dates: start: 20101029
  9. VELAGLUCERASE ALFA [Suspect]
     Active Substance: VELAGLUCERASE ALFA
     Dosage: 9 DOSAGE FORM, Q2WEEKS
     Route: 050
     Dates: start: 20101029
  10. VELAGLUCERASE ALFA [Suspect]
     Active Substance: VELAGLUCERASE ALFA
     Dosage: 9 INTERNATIONAL UNIT, Q2WEEKS
     Route: 065
     Dates: start: 20101029
  11. VELAGLUCERASE ALFA [Suspect]
     Active Substance: VELAGLUCERASE ALFA
     Dosage: 9 DOSAGE FORM, Q2WEEKS
     Route: 050
     Dates: start: 20101029
  12. VELAGLUCERASE ALFA [Suspect]
     Active Substance: VELAGLUCERASE ALFA
     Dosage: 9 DOSAGE FORM, Q2WEEKS
     Route: 065
     Dates: start: 20101029
  13. VELAGLUCERASE ALFA [Suspect]
     Active Substance: VELAGLUCERASE ALFA
     Dosage: 9 INTERNATIONAL UNIT, Q2WEEKS
     Route: 050
     Dates: start: 20101029

REACTIONS (11)
  - Humerus fracture [Recovered/Resolved]
  - Fall [Recovered/Resolved]
  - Urinary tract infection [Recovered/Resolved]
  - Ankle fracture [Not Recovered/Not Resolved]
  - Oxygen saturation decreased [Not Recovered/Not Resolved]
  - Bone disorder [Not Recovered/Not Resolved]
  - Weight increased [Unknown]
  - Heart rate increased [Unknown]
  - Infusion related reaction [Unknown]
  - Product dose omission issue [Unknown]
  - Inappropriate schedule of product administration [Unknown]

NARRATIVE: CASE EVENT DATE: 20200922
